FAERS Safety Report 9424505 (Version 3)
Quarter: 2015Q1

REPORT INFORMATION
  Report Type: Spontaneous
  Country: FR (occurrence: None)
  Receive Date: 20130725
  Receipt Date: 20150327
  Transmission Date: 20150721
  Serious: Yes (Hospitalization)
  Sender: FDA-Public Use
  Company Number: CLINIGEN-003049

PATIENT
  Age: 63 Year
  Sex: Male

DRUGS (17)
  1. IMODIUM [Concomitant]
     Active Substance: LOPERAMIDE HYDROCHLORIDE
  2. CERTICAN [Suspect]
     Active Substance: EVEROLIMUS
     Indication: ORGAN TRANSPLANT
     Route: 048
  3. DEXAFREE [Concomitant]
     Active Substance: DEXAMETHASONE SODIUM PHOSPHATE
  4. IMOVANE [Concomitant]
     Active Substance: ZOPICLONE
  5. DIFFU K [Concomitant]
     Active Substance: POTASSIUM CHLORIDE
  6. INEXIUM [Concomitant]
     Active Substance: ESOMEPRAZOLE
  7. ATROVENT [Concomitant]
     Active Substance: IPRATROPIUM BROMIDE
  8. SOLUPRED [Concomitant]
     Active Substance: PREDNISOLONE
  9. FOSCAVIR [Suspect]
     Active Substance: FOSCARNET SODIUM
     Indication: CYTOMEGALOVIRUS INFECTION
     Dates: start: 20130616, end: 20130622
  10. CACIT D3 [Concomitant]
     Active Substance: CALCIUM\CHOLECALCIFEROL
  11. PERFALGAN [Concomitant]
     Active Substance: ACETAMINOPHEN
  12. PRIMPERAN [Concomitant]
     Active Substance: METOCLOPRAMIDE HYDROCHLORIDE
  13. TAVANIC [Concomitant]
     Active Substance: LEVOFLOXACIN
  14. FOSAMAX [Concomitant]
     Active Substance: ALENDRONATE SODIUM
  15. CARDENSIEL [Concomitant]
     Active Substance: BISOPROLOL FUMARATE
  16. PROGRAF (PROGRAF) 3 MG (NOT SPECIFIED) [Concomitant]
     Indication: ORGAN TRANSPLANT
     Route: 048
  17. NEUPOGEN [Concomitant]
     Active Substance: FILGRASTIM

REACTIONS (3)
  - Thrombotic microangiopathy [None]
  - Condition aggravated [None]
  - Haemolytic anaemia [None]

NARRATIVE: CASE EVENT DATE: 20130619
